FAERS Safety Report 23829662 (Version 1)
Quarter: 2024Q2

REPORT INFORMATION
  Report Type: Spontaneous
  Country: ZA (occurrence: ZA)
  Receive Date: 20240508
  Receipt Date: 20240508
  Transmission Date: 20240715
  Serious: Yes (Hospitalization, Other)
  Sender: FDA-Public Use
  Company Number: ZA-ABBOTT-2024A-1381082

PATIENT
  Age: 64 Year
  Sex: Male

DRUGS (23)
  1. CREON [Suspect]
     Active Substance: PANCRELIPASE AMYLASE\PANCRELIPASE LIPASE\PANCRELIPASE PROTEASE
     Indication: Product used for unknown indication
     Dosage: 150 MG DIRECTIONS TAKE ONE CAPSULE THREE TIMES A DAY
     Route: 048
  2. METOCLOPRAMIDE HYDROCHLORIDE [Concomitant]
     Active Substance: METOCLOPRAMIDE HYDROCHLORIDE
     Indication: Product used for unknown indication
     Dosage: 10 MG DIRECTIONS TAKE ONE TABLET THREE TIMES A DAY
     Route: 048
  3. ETOPOSIDE [Concomitant]
     Active Substance: ETOPOSIDE
     Indication: Chemotherapy
     Dosage: 100 MG DIRECTIONS ADMINISTER 150MG IVI ON DAY2-4?ETOPOSIDE  FRESENIUS
     Route: 042
  4. DORMONOCT [Concomitant]
     Active Substance: LOPRAZOLAM
     Indication: Sleep disorder
     Dosage: 2 MG DIRECTIONS TAKE ONE TABLET AT NIGHT
     Route: 048
  5. MEBEVERINE [Concomitant]
     Active Substance: MEBEVERINE
     Indication: Irritable bowel syndrome
     Dosage: 135 MG DIRECTIONS TAKE ONE TABLET THREE TIMES A DAY
     Route: 048
  6. Dexona [Concomitant]
     Indication: Product used for unknown indication
     Dosage: 4 MG DIRECTIONS ADMINISTER 8MG IVI ON DAY2-4
     Route: 042
  7. VOMIDON [Concomitant]
     Indication: Vomiting
     Dosage: 2 MG DIRECTIONS TAKE ONE TABLET AT NIGHT
     Route: 048
  8. DEXILANT [Concomitant]
     Active Substance: DEXLANSOPRAZOLE
     Indication: Product used for unknown indication
     Dosage: 60 MG DIRECTIONS TAKE ONE CAPSULE ONCE DAILY
     Route: 048
  9. MESNA [Concomitant]
     Active Substance: MESNA
     Indication: Product used for unknown indication
     Dosage: 100 MG DIRECTIONS ADMINISTER 7500MG IVI ON DAY3-4
     Route: 042
  10. CARBOPLATIN [Concomitant]
     Active Substance: CARBOPLATIN
     Indication: Chemotherapy
     Dosage: 600 MG DIRECTIONS ADMINISTER 600MG IVI ON DAY3?CARBOPLATIN FRESENIUS
     Route: 042
  11. RUPATADINE FUMARATE [Concomitant]
     Active Substance: RUPATADINE FUMARATE
     Indication: Hypersensitivity
     Dosage: 10 MG DIRECTIONS TAKE ONE TABLET
     Route: 048
  12. ACETAMINOPHEN [Concomitant]
     Active Substance: ACETAMINOPHEN
     Indication: Product used for unknown indication
     Dosage: 1 G DIRECTIONS ADMINISTER 1G ON DAY1?PARACETAMOL IV  ADCO
     Route: 042
  13. Tronson [Concomitant]
     Indication: Product used for unknown indication
     Dosage: 0.25 MG DIRECTIONS ADMINISTER 0.25MG IVI
     Route: 042
  14. Pantocid [Concomitant]
     Indication: Ulcer
     Dosage: 40 MG DIRECTIONS TAKE ONE TABLET IN THE MORNING
     Route: 048
  15. BUTYLSCOPOLAMINE BROMIDE [Concomitant]
     Active Substance: BUTYLSCOPOLAMINE BROMIDE
     Indication: Product used for unknown indication
     Dosage: 10 MG DIRECTIONS AS DIRECTED
     Route: 048
  16. RITUXIMAB [Concomitant]
     Active Substance: RITUXIMAB
     Indication: Non-Hodgkin^s lymphoma
     Dosage: 500 MG DIRECTIONS ADMINISTER 600MG IVI
     Route: 042
  17. RITUXIMAB [Concomitant]
     Active Substance: RITUXIMAB
     Indication: Non-Hodgkin^s lymphoma
     Dosage: 100 MG DIRECTIONS ADMINISTER 600MG IVI
     Route: 042
  18. NEUPOGEN [Concomitant]
     Active Substance: FILGRASTIM
     Indication: Product used for unknown indication
     Dosage: 30 MIU DIRECTIONS ADMINISTER 30MIU ON DAY5-9?NEUPOGEN PREFILLED
     Route: 042
  19. IFOSFAMIDE [Concomitant]
     Active Substance: IFOSFAMIDE
     Indication: Chemotherapy
     Dosage: 2000 MG DIRECTIONS ADMINISTER 7500MG IVI ON DAY3-4
     Route: 042
  20. Topraz [Concomitant]
     Indication: Asthma
     Dosage: 10 MG DIRECTIONS TAKE ONE TABLET
     Route: 048
  21. BUDESONIDE\FORMOTEROL [Concomitant]
     Active Substance: BUDESONIDE\FORMOTEROL
     Indication: Product used for unknown indication
     Dosage: 160 MCG INHALE TWO PUFFS TWICE A DAY?SYMBICORD 120
     Route: 055
  22. HEPARIN FRESENIUS [Concomitant]
     Indication: Product used for unknown indication
     Dosage: 1000 IU DIRECTIONS ADMINISTER AS DIRECTED?HEPARIN FRESENIUS
     Route: 042
  23. SOLU-CORTEF [Concomitant]
     Active Substance: HYDROCORTISONE SODIUM SUCCINATE
     Indication: Product used for unknown indication
     Dosage: 100 MG DIRECTIONS ADMINISTER 100MG IVI ON DAY1?SOLU-CORTEF
     Route: 048

REACTIONS (1)
  - Neoplasm malignant [Unknown]
